FAERS Safety Report 5625491-X (Version None)
Quarter: 2008Q1

REPORT INFORMATION
  Report Type: 
  Country: None (occurrence: None)
  Receive Date: 20080207
  Receipt Date: 20080124
  Transmission Date: 20080703
  Serious: Yes (Hospitalization)
  Sender: FDA-Public Use
  Company Number: B0506134A

PATIENT
  Age: 15 Year
  Sex: Female

DRUGS (4)
  1. LAMIVUDINE [Suspect]
     Indication: HEPATITIS B
     Dosage: 4 MG/KG
  2. TACROLIMUS [Suspect]
     Indication: IMMUNOSUPPRESSION
  3. PREDNISOLONE [Concomitant]
  4. MYCOPHENOLATE MOFETIL [Concomitant]

REACTIONS (16)
  - BLOOD GLUCOSE INCREASED [None]
  - DEHYDRATION [None]
  - FANCONI SYNDROME [None]
  - GAIT DISTURBANCE [None]
  - HYPERCALCIURIA [None]
  - HYPOURICAEMIA [None]
  - LETHARGY [None]
  - METABOLIC ACIDOSIS [None]
  - MITOCHONDRIAL CYTOPATHY [None]
  - MITOCHONDRIAL DNA MUTATION [None]
  - MYOPATHY [None]
  - NEPHROPATHY [None]
  - OSTEOPOROSIS [None]
  - RENAL TUBULAR ACIDOSIS [None]
  - RENAL TUBULAR DISORDER [None]
  - VOMITING [None]
